FAERS Safety Report 24226428 (Version 2)
Quarter: 2024Q3

REPORT INFORMATION
  Report Type: Spontaneous
  Country: FR (occurrence: FR)
  Receive Date: 20240820
  Receipt Date: 20240904
  Transmission Date: 20241017
  Serious: Yes (Death)
  Sender: TEVA
  Company Number: FR-TEVA-VS-3233410

PATIENT
  Age: 34 Year
  Sex: Male

DRUGS (5)
  1. CARBOPLATIN [Suspect]
     Active Substance: CARBOPLATIN
     Indication: Lung adenocarcinoma
     Dosage: DOSAGE: 5AUC (RECEIVED 2 CYCLES)
     Route: 065
     Dates: start: 20230110
  2. LORLATINIB [Suspect]
     Active Substance: LORLATINIB
     Indication: Lung adenocarcinoma
     Route: 065
     Dates: start: 202302, end: 202303
  3. ALECTINIB [Suspect]
     Active Substance: ALECTINIB
     Indication: Lung adenocarcinoma
     Route: 065
     Dates: start: 202210
  4. BRIGATINIB [Suspect]
     Active Substance: BRIGATINIB
     Indication: Lung adenocarcinoma
     Route: 065
     Dates: start: 202212
  5. PEMETREXED [Suspect]
     Active Substance: PEMETREXED
     Indication: Lung adenocarcinoma
     Dosage: RECEIVED TWO CYCLES
     Route: 065
     Dates: start: 20230110

REACTIONS (1)
  - Drug ineffective [Fatal]
